FAERS Safety Report 9855231 (Version 1)
Quarter: 2014Q1

REPORT INFORMATION
  Report Type: Spontaneous
  Country: PT (occurrence: PT)
  Receive Date: 20140130
  Receipt Date: 20140130
  Transmission Date: 20141002
  Serious: Yes (Hospitalization)
  Sender: FDA-Public Use
  Company Number: PT-B.I. PHARMACEUTICALS,INC./RIDGEFIELD-2014-BI-03469PO

PATIENT
  Age: 70 Year
  Sex: Female

DRUGS (3)
  1. PRADAXA [Suspect]
     Indication: THROMBOSIS PROPHYLAXIS
     Dosage: 220 MG
     Route: 048
     Dates: start: 201206, end: 201306
  2. PRADAXA [Suspect]
     Dosage: 300 MG
     Route: 048
     Dates: end: 201306
  3. AMIODARONE [Concomitant]
     Indication: ATRIAL FIBRILLATION
     Dosage: 200 MG
     Route: 048

REACTIONS (2)
  - Drug resistance [Unknown]
  - Embolic stroke [Recovered/Resolved with Sequelae]
